FAERS Safety Report 13804706 (Version 2)
Quarter: 2017Q3

REPORT INFORMATION
  Report Type: Report from Study
  Country: CA (occurrence: CA)
  Receive Date: 20170728
  Receipt Date: 20170808
  Transmission Date: 20171127
  Serious: Yes (Other)
  Sender: FDA-Public Use
  Company Number: CA-ROCHE-1962182

PATIENT
  Sex: Male

DRUGS (10)
  1. NOVO-PREDNISONE [Concomitant]
     Active Substance: PREDNISONE
  2. FLOVENT [Concomitant]
     Active Substance: FLUTICASONE PROPIONATE
  3. ROSUVASTATIN. [Concomitant]
     Active Substance: ROSUVASTATIN
  4. DUTASTERIDE. [Concomitant]
     Active Substance: DUTASTERIDE
  5. ASPIRIN. [Concomitant]
     Active Substance: ASPIRIN
  6. APO - SALVENT [Concomitant]
  7. TOLTERODINE [Concomitant]
     Active Substance: TOLTERODINE
  8. AMLODIPINE [Concomitant]
     Active Substance: AMLODIPINE BESYLATE
  9. TECENTRIQ [Suspect]
     Active Substance: ATEZOLIZUMAB
     Indication: TRANSITIONAL CELL CARCINOMA
     Route: 042
     Dates: start: 20170619, end: 20170713
  10. BENADRYL [Concomitant]
     Active Substance: DIPHENHYDRAMINE HYDROCHLORIDE

REACTIONS (12)
  - Haemorrhage urinary tract [Unknown]
  - Vomiting [Unknown]
  - Abdominal pain [Unknown]
  - Constipation [Unknown]
  - Renal pain [Unknown]
  - Kidney infection [Unknown]
  - Blood creatinine increased [Unknown]
  - Nausea [Unknown]
  - Back pain [Unknown]
  - Dysuria [Unknown]
  - Decreased appetite [Unknown]
  - Asthenia [Unknown]
